FAERS Safety Report 15999121 (Version 1)
Quarter: 2019Q1

REPORT INFORMATION
  Report Type: Spontaneous
  Country: FR (occurrence: FR)
  Receive Date: 20190225
  Receipt Date: 20190225
  Transmission Date: 20190418
  Serious: Yes (Life-Threatening)
  Sender: FDA-Public Use
  Company Number: FR-ROCHE-2263880

PATIENT
  Age: 2 Year
  Sex: Male
  Weight: 10 kg

DRUGS (6)
  1. ZONEGRAN [Suspect]
     Active Substance: ZONISAMIDE
     Indication: PRODUCT ADMINISTRATION ERROR
     Route: 048
     Dates: start: 20190113, end: 20190113
  2. LIORESAL [Suspect]
     Active Substance: BACLOFEN
     Indication: PRODUCT ADMINISTRATION ERROR
     Route: 048
     Dates: start: 20190113, end: 20190113
  3. LAROXYL [Suspect]
     Active Substance: AMITRIPTYLINE HYDROCHLORIDE
     Indication: PRODUCT ADMINISTRATION ERROR
     Dosage: UNIT DOSE: 1 [DRP]
     Route: 048
     Dates: start: 20190113, end: 20190113
  4. LAMICTAL [Suspect]
     Active Substance: LAMOTRIGINE
     Indication: PRODUCT ADMINISTRATION ERROR
     Route: 048
     Dates: start: 20190113, end: 20190113
  5. VALIUM [Suspect]
     Active Substance: DIAZEPAM
     Indication: PRODUCT ADMINISTRATION ERROR
     Dosage: UNIT DOSE: 3 [DRP]
     Route: 048
     Dates: start: 20190113, end: 20190113
  6. MICROPAKINE [Suspect]
     Active Substance: VALPROATE SODIUM
     Indication: PRODUCT ADMINISTRATION ERROR
     Route: 048
     Dates: start: 20190113, end: 20190113

REACTIONS (4)
  - Apnoea [Recovered/Resolved]
  - Respiratory distress [Recovered/Resolved]
  - Coma [Recovered/Resolved]
  - Wrong patient received product [Unknown]

NARRATIVE: CASE EVENT DATE: 20190113
